FAERS Safety Report 15844774 (Version 10)
Quarter: 2019Q1

REPORT INFORMATION
  Report Type: Spontaneous
  Country: TW (occurrence: TW)
  Receive Date: 20190118
  Receipt Date: 20190326
  Transmission Date: 20190417
  Serious: Yes (Hospitalization, Other)
  Sender: FDA-Public Use
  Company Number: TW-PFIZER INC-2018531576

PATIENT
  Age: 14 Year
  Sex: Male

DRUGS (2)
  1. BENEFIX [Suspect]
     Active Substance: COAGULATION FACTOR IX RECOMBINANT HUMAN\ISOPROPYL ALCOHOL
     Dosage: 2500 IU, UNK
     Dates: start: 20190221
  2. BENEFIX [Suspect]
     Active Substance: COAGULATION FACTOR IX RECOMBINANT HUMAN\ISOPROPYL ALCOHOL
     Indication: FACTOR IX DEFICIENCY
     Dosage: 2500 IU, ON-DEMAND (THE FREQUENCY OF INJECTION WAS WHEN HAEMORRHAGE OCCURRED, AS NEEDED)
     Route: 042

REACTIONS (10)
  - White blood cell count decreased [Not Recovered/Not Resolved]
  - Disturbance in attention [Recovering/Resolving]
  - Decreased activity [Recovering/Resolving]
  - Asthenia [Not Recovered/Not Resolved]
  - Intracranial pressure increased [Unknown]
  - Fatigue [Recovering/Resolving]
  - Brain neoplasm malignant [Not Recovered/Not Resolved]
  - Hydrocephalus [Unknown]
  - Diplopia [Recovering/Resolving]
  - Electroencephalogram abnormal [Not Recovered/Not Resolved]

NARRATIVE: CASE EVENT DATE: 2018
